FAERS Safety Report 22754082 (Version 3)
Quarter: 2024Q1

REPORT INFORMATION
  Report Type: Spontaneous
  Country: CA (occurrence: CA)
  Receive Date: 20230727
  Receipt Date: 20240205
  Transmission Date: 20240409
  Serious: Yes (Other)
  Sender: FDA-Public Use
  Company Number: None

PATIENT
  Sex: Male

DRUGS (17)
  1. MOXIFLOXACIN [Suspect]
     Active Substance: MOXIFLOXACIN
     Indication: Mycobacterium chelonae infection
     Dosage: UNK, (UNTIL JULY 5)
     Route: 065
  2. MOXIFLOXACIN [Suspect]
     Active Substance: MOXIFLOXACIN
     Indication: Localised infection
  3. AZITHROMYCIN ANHYDROUS [Suspect]
     Active Substance: AZITHROMYCIN ANHYDROUS
     Indication: Mycobacterium chelonae infection
     Dosage: UNK, (APR 26 AZITHROMYCIN FOR 1 WEEK AND UNTIL UNTIL JULY 5)
     Route: 065
  4. AZITHROMYCIN ANHYDROUS [Suspect]
     Active Substance: AZITHROMYCIN ANHYDROUS
     Indication: Localised infection
  5. CIPRO [Concomitant]
     Active Substance: CIPROFLOXACIN HYDROCHLORIDE
     Indication: Mycobacterium chelonae infection
     Dosage: UNK, (MAY 3 CIPRO FOR 2 WEEKS)
     Route: 065
  6. CIPRO [Concomitant]
     Active Substance: CIPROFLOXACIN HYDROCHLORIDE
     Indication: Product used for unknown indication
  7. AMOXICILLIN\CLAVULANATE POTASSIUM [Concomitant]
     Active Substance: AMOXICILLIN\CLAVULANATE POTASSIUM
     Indication: Mycobacterium chelonae infection
     Dosage: UNK, (APR 26 )
     Route: 065
  8. DOXYCYCLINE [Concomitant]
     Active Substance: DOXYCYCLINE
     Indication: Mycobacterium chelonae infection
     Dosage: UNK, (APR 5, FOR 1 WEEK)
     Route: 065
  9. DOXYCYCLINE [Concomitant]
     Active Substance: DOXYCYCLINE
     Dosage: UNK, (MAY 3 DOXYCYCLINE FOR 2 WEEKS)
     Route: 065
  10. LINEZOLID [Concomitant]
     Active Substance: LINEZOLID
     Indication: Mycobacterium chelonae infection
     Dosage: UNK, (MAY 17)
     Route: 065
  11. PIPERACILLIN SODIUM\TAZOBACTAM SODIUM [Concomitant]
     Active Substance: PIPERACILLIN SODIUM\TAZOBACTAM SODIUM
     Indication: Mycobacterium chelonae infection
     Dosage: UNK, (APR 12-25, FOR 2 WEEKS)
     Route: 065
  12. CLARITHROMYCIN [Interacting]
     Active Substance: CLARITHROMYCIN
     Indication: Mycobacterium chelonae infection
     Dosage: UNK
     Route: 065
  13. CLARITHROMYCIN [Interacting]
     Active Substance: CLARITHROMYCIN
     Indication: Localised infection
  14. MYCOPHENOLATE MOFETIL [Interacting]
     Active Substance: MYCOPHENOLATE MOFETIL
     Indication: Mycobacterium chelonae infection
     Dosage: UNK
     Route: 065
  15. MYCOPHENOLATE MOFETIL [Interacting]
     Active Substance: MYCOPHENOLATE MOFETIL
     Indication: Localised infection
  16. TACROLIMUS [Interacting]
     Active Substance: TACROLIMUS
     Indication: Mycobacterium chelonae infection
     Dosage: UNK
     Route: 065
  17. TACROLIMUS [Interacting]
     Active Substance: TACROLIMUS
     Indication: Localised infection

REACTIONS (7)
  - Mycobacterium chelonae infection [Unknown]
  - Drug interaction [Unknown]
  - Localised infection [Unknown]
  - Condition aggravated [Unknown]
  - Contraindicated product administered [Unknown]
  - Drug ineffective [Unknown]
  - Product use in unapproved indication [Unknown]
